FAERS Safety Report 9709343 (Version 4)
Quarter: 2014Q1

REPORT INFORMATION
  Report Type: Spontaneous
  Country: US (occurrence: US)
  Receive Date: 20131125
  Receipt Date: 20140115
  Transmission Date: 20141002
  Serious: Yes (Death, Hospitalization)
  Sender: FDA-Public Use
  Company Number: US-ROCHE-1306381

PATIENT
  Age: 35 Year
  Sex: Female
  Weight: 43.09 kg

DRUGS (12)
  1. ZELBORAF [Suspect]
     Indication: METASTATIC MALIGNANT MELANOMA
     Route: 048
     Dates: start: 20130924, end: 20131224
  2. HYDROXYCHLOROQUINE SULFATE [Suspect]
     Indication: METASTATIC MALIGNANT MELANOMA
     Dosage: AM
     Route: 065
     Dates: start: 20131001, end: 20131224
  3. HYDROXYCHLOROQUINE SULFATE [Suspect]
     Dosage: PM
     Route: 065
     Dates: start: 20131001, end: 20131224
  4. ZOFRAN [Concomitant]
     Route: 048
     Dates: start: 20130806
  5. COLACE [Concomitant]
     Route: 048
     Dates: start: 20130924
  6. POLYETHYLENE GLYCOL [Concomitant]
     Dosage: 3350 1 PACK DAILY
     Route: 048
     Dates: start: 2013
  7. VENTOLIN HFA [Concomitant]
     Dosage: 100 (90 BASE)MCG/ACT AES 2 PUFFS EVERY 4 HRS PRN
     Route: 065
     Dates: start: 20130806
  8. BUPROPION HCL [Concomitant]
     Route: 048
     Dates: start: 20130809
  9. OXYCODONE [Concomitant]
     Indication: PAIN
     Dosage: 1-2 Q 4-6
     Route: 048
     Dates: start: 20131109
  10. DEXAMETHASONE [Concomitant]
     Indication: NAUSEA
     Route: 048
     Dates: start: 20131109
  11. OMEPRAZOLE [Concomitant]
     Indication: GASTROOESOPHAGEAL REFLUX DISEASE
     Dosage: 2 CAP
     Route: 048
     Dates: start: 20131109
  12. COMPAZINE [Concomitant]
     Indication: NAUSEA
     Route: 048
     Dates: start: 20131109

REACTIONS (7)
  - Malignant melanoma [Fatal]
  - Dyspnoea [Recovered/Resolved]
  - Nausea [Not Recovered/Not Resolved]
  - Vomiting [Not Recovered/Not Resolved]
  - Hypophagia [Not Recovered/Not Resolved]
  - Dysphagia [Unknown]
  - Choking [Unknown]
